FAERS Safety Report 16931177 (Version 2)
Quarter: 2019Q4

REPORT INFORMATION
  Report Type: Spontaneous
  Country: US (occurrence: US)
  Receive Date: 20191017
  Receipt Date: 20191025
  Transmission Date: 20200122
  Serious: Yes (Disabling, Congenital Anomaly, Other)
  Sender: FDA-Public Use
  Company Number: US-HIKMA PHARMACEUTICALS USA INC.-US-H14001-19-05338

PATIENT
  Age: 2 Year
  Sex: Female

DRUGS (1)
  1. METHOTREXATE. [Suspect]
     Active Substance: METHOTREXATE
     Indication: ABORTION INDUCED
     Route: 064

REACTIONS (17)
  - Teratogenicity [Unknown]
  - Anomaly of external ear congenital [Unknown]
  - Craniosynostosis [Unknown]
  - Talipes [Unknown]
  - Phalangeal hypoplasia [Unknown]
  - Dysmorphism [Unknown]
  - Brachydactyly [Unknown]
  - Oxycephaly [Unknown]
  - Abnormal palmar/plantar creases [Unknown]
  - Ectrodactyly [Unknown]
  - Adactyly [Unknown]
  - Clinodactyly [Unknown]
  - Cervical spinal stenosis [Unknown]
  - Gastrointestinal malformation [Unknown]
  - Foetal exposure during pregnancy [Recovered/Resolved]
  - Off label use [Recovered/Resolved]
  - Exophthalmos [Unknown]
